FAERS Safety Report 7381586-4 (Version None)
Quarter: 2011Q1

REPORT INFORMATION
  Report Type: 
  Country: None (occurrence: None)
  Receive Date: 20110329
  Receipt Date: 20110325
  Transmission Date: 20110831
  Serious: Yes (Death)
  Sender: FDA-Public Use
  Company Number: PHHY2011AT24659

PATIENT
  Age: 82 Year
  Sex: Female

DRUGS (1)
  1. EBETREXAT [Suspect]
     Indication: RHEUMATOID ARTHRITIS
     Dosage: 20 MG/DAY
     Route: 048
     Dates: start: 20100514, end: 20100522

REACTIONS (3)
  - ACCIDENTAL OVERDOSE [None]
  - RASH [None]
  - MOUTH ULCERATION [None]
